FAERS Safety Report 21148309 (Version 3)
Quarter: 2023Q1

REPORT INFORMATION
  Report Type: Spontaneous
  Country: US (occurrence: US)
  Receive Date: 20220729
  Receipt Date: 20230316
  Transmission Date: 20230418
  Serious: No
  Sender: FDA-Public Use
  Company Number: US-BRISTOL-MYERS SQUIBB COMPANY-2022-082273

PATIENT
  Age: 64 Year
  Sex: Female

DRUGS (3)
  1. POMALYST [Suspect]
     Active Substance: POMALIDOMIDE
     Indication: Plasma cell myeloma
     Route: 048
     Dates: start: 20220608
  2. POMALYST [Suspect]
     Active Substance: POMALIDOMIDE
     Dosage: FREQ: TAKE 1 CAPSULE BY MOUTH DAILY IN THE MORNING FOR 21 CONSECUTIVE DAYS OF A 28 DAY CYCLE.
     Route: 048
     Dates: start: 20220804
  3. REVLIMID [Concomitant]
     Active Substance: LENALIDOMIDE
     Indication: Product used for unknown indication

REACTIONS (3)
  - Bronchitis [Unknown]
  - Neutrophil count decreased [Unknown]
  - Nasopharyngitis [Unknown]
